FAERS Safety Report 9520172 (Version 1)
Quarter: 2013Q3

REPORT INFORMATION
  Report Type: Spontaneous
  Country: US (occurrence: US)
  Receive Date: 20130912
  Receipt Date: 20130912
  Transmission Date: 20140515
  Serious: Yes (Other)
  Sender: FDA-Public Use
  Company Number: US-GLAXOSMITHKLINE-A1041245A

PATIENT
  Sex: Female

DRUGS (1)
  1. PROMACTA [Suspect]
     Indication: PRODUCT USED FOR UNKNOWN INDICATION

REACTIONS (11)
  - Depressed level of consciousness [Unknown]
  - Fatigue [Unknown]
  - Myalgia [Unknown]
  - Arthralgia [Unknown]
  - Vision blurred [Unknown]
  - Insomnia [Unknown]
  - Impaired driving ability [Unknown]
  - Walking aid user [Unknown]
  - Red blood cell count decreased [Unknown]
  - Alopecia [Unknown]
  - Dysgeusia [Unknown]
